FAERS Safety Report 6517104-X (Version None)
Quarter: 2009Q4

REPORT INFORMATION
  Report Type: 
  Country: None (occurrence: None)
  Receive Date: 20091223
  Receipt Date: 20091217
  Transmission Date: 20100525
  Serious: Yes (Life-Threatening, Hospitalization)
  Sender: FDA-Public Use
  Company Number: B0617092A

PATIENT
  Age: 23 Year
  Sex: Female

DRUGS (8)
  1. AMOXICILLIN [Suspect]
     Route: 065
  2. HYOSCINE [Suspect]
     Route: 065
  3. SERTRALINE HCL [Suspect]
     Route: 065
  4. CLOZARIL [Suspect]
     Indication: SCHIZOPHRENIA
     Route: 048
     Dates: start: 20030623, end: 20060504
  5. CLOZARIL [Suspect]
     Route: 048
  6. ANTIBIOTICS [Suspect]
     Route: 065
  7. MOCLOBEMIDE [Concomitant]
     Indication: DEPRESSION
     Route: 048
  8. SULPIRIDE [Concomitant]
     Indication: SCHIZOPHRENIA
     Route: 048

REACTIONS (6)
  - ALANINE AMINOTRANSFERASE INCREASED [None]
  - LIVER FUNCTION TEST ABNORMAL [None]
  - LOSS OF CONSCIOUSNESS [None]
  - OVERDOSE [None]
  - VOMITING [None]
  - WEIGHT DECREASED [None]
